FAERS Safety Report 18047263 (Version 4)
Quarter: 2021Q2

REPORT INFORMATION
  Report Type: Spontaneous
  Country: DE (occurrence: DE)
  Receive Date: 20200720
  Receipt Date: 20210625
  Transmission Date: 20210717
  Serious: Yes (Other)
  Sender: FDA-Public Use
  Company Number: DE-BAXTER-2020BAX014773

PATIENT
  Age: 34 Year
  Sex: Female

DRUGS (12)
  1. MESNEX [Suspect]
     Active Substance: MESNA
     Indication: BURKITT^S LYMPHOMA STAGE IV
     Dosage: AT 0, 4, AND 8 HOURS AFTER CPA DAY 2 PRENATAL PHASE
     Route: 042
  2. FILGRASTIM [Suspect]
     Active Substance: FILGRASTIM
     Indication: BURKITT^S LYMPHOMA STAGE IV
  3. DOXIL [Suspect]
     Active Substance: DOXORUBICIN HYDROCHLORIDE
     Indication: BURKITT^S LYMPHOMA STAGE IV
     Dosage: OVER 30 MINUTES ON DAY 2 (50 MG/M2)
     Route: 042
  4. ENDOXAN LYOPHILISAT [Suspect]
     Active Substance: CYCLOPHOSPHAMIDE
     Indication: BURKITT^S LYMPHOMA STAGE IV
     Dosage: 5 CYCLES OVER 1 HOUR ON DAY 2 OF R?CHOEP REGIMEN
     Route: 042
  5. CYTARABINE. [Suspect]
     Active Substance: CYTARABINE
     Dosage: 5 CYCLES OVER 1 HOUR EVERY 12 HOURS ON DAYS 2?6 PRENATAL PHASE OF R?CHOEP REGIMEN
     Route: 042
  6. DEXAMETHASONE. [Suspect]
     Active Substance: DEXAMETHASONE
     Indication: BURKITT^S LYMPHOMA STAGE IV
     Dosage: ON DAYS 2 AND 6 PRENATAL PHASE
     Route: 037
  7. CYTARABINE. [Suspect]
     Active Substance: CYTARABINE
     Indication: BURKITT^S LYMPHOMA STAGE IV
     Dosage: ON DAYS 2 AND 6 PRENATAL PHASE (40 MG)
     Route: 037
  8. FILGRASTIM [Suspect]
     Active Substance: FILGRASTIM
     Indication: PRODUCT USED FOR UNKNOWN INDICATION
     Dosage: ON DAYS 6?11 PRENATAL PHASE (10 UG/KG)
     Route: 058
  9. PREDNISOLONE. [Suspect]
     Active Substance: PREDNISOLONE
     Indication: BURKITT^S LYMPHOMA STAGE IV
     Dosage: 5 CYCLES ON DAYS 2?5 PRENATAL PHASE OF R?CHOEP REGIMEN
     Route: 048
  10. RITUXIMAB. [Suspect]
     Active Substance: RITUXIMAB
     Indication: BURKITT^S LYMPHOMA STAGE IV
     Dosage: 5 CYCLES OVER 3 HOURS ON DAY 1 PRENATAL PHASE
     Route: 042
  11. ETOPOSIDE. [Suspect]
     Active Substance: ETOPOSIDE
     Indication: BURKITT^S LYMPHOMA STAGE IV
     Dosage: 5 CYCLES OF OVER 1 HOUR ON DAYS 2?4 PRENATAL PHASE OF R?CHOEP REGIMEN
     Route: 042
  12. VINCRISTINE [Suspect]
     Active Substance: VINCRISTINE
     Indication: BURKITT^S LYMPHOMA STAGE IV
     Dosage: 5 CYCLES ON DAY 2 PRENATAL PHASE OF R?CHOEP REGIMEN
     Route: 040

REACTIONS (3)
  - Maternal exposure during pregnancy [Unknown]
  - Amniotic fluid volume decreased [Not Recovered/Not Resolved]
  - Premature delivery [Unknown]
